FAERS Safety Report 7059868-5 (Version None)
Quarter: 2010Q4

REPORT INFORMATION
  Report Type: 
  Country: None (occurrence: None)
  Receive Date: 20101025
  Receipt Date: 20101012
  Transmission Date: 20110411
  Serious: Yes (Hospitalization)
  Sender: FDA-Public Use
  Company Number: PHHY2010GB21820

PATIENT
  Sex: Male

DRUGS (4)
  1. CLOZARIL [Suspect]
     Indication: SCHIZOPHRENIA
     Dosage: 225MG
     Dates: start: 19940914
  2. VALPROATE SODIUM [Concomitant]
     Dosage: 100MG
     Route: 048
  3. DESMOPRESSIN ACETATE [Concomitant]
     Dosage: PRN
  4. PIRENZEPINE [Concomitant]
     Dosage: 25MG
     Route: 048

REACTIONS (7)
  - ANKYLOSING SPONDYLITIS [None]
  - CHEST DISCOMFORT [None]
  - INTERVERTEBRAL DISC OPERATION [None]
  - RESPIRATORY FAILURE [None]
  - SPINAL DISORDER [None]
  - SURGERY [None]
  - TRACHEOSTOMY [None]
